FAERS Safety Report 5867867-1 (Version None)
Quarter: 2008Q3

REPORT INFORMATION
  Report Type: 
  Country: None (occurrence: None)
  Receive Date: 20080902
  Receipt Date: 20080826
  Transmission Date: 20090109
  Serious: Yes (Hospitalization)
  Sender: FDA-Public Use
  Company Number: IE-BOEHRINGER INGELHEIM GMBH, GERMANY-2008-BP-13422RO

PATIENT
  Age: 37 Year
  Sex: Male

DRUGS (7)
  1. METHADONE HCL [Suspect]
  2. DIAZEPAM [Suspect]
  3. FLURAZEPAM [Suspect]
     Dates: start: 20070501
  4. ATAZANAVIR [Suspect]
     Indication: HIV INFECTION
     Dates: start: 20070101
  5. RITONAVIR [Suspect]
     Indication: HIV INFECTION
     Dates: start: 20070101
  6. ABACAVIR [Suspect]
     Indication: HIV INFECTION
     Dates: start: 20070101
  7. LAMIVUDINE [Suspect]
     Indication: HIV INFECTION
     Dates: start: 20070101

REACTIONS (5)
  - ELECTROCARDIOGRAM QT PROLONGED [None]
  - HYPOKALAEMIA [None]
  - SYNCOPE [None]
  - TORSADE DE POINTES [None]
  - VENTRICULAR TACHYCARDIA [None]
